FAERS Safety Report 8144014-7 (Version None)
Quarter: 2012Q1

REPORT INFORMATION
  Report Type: 
  Country: None (occurrence: None)
  Receive Date: 20120217
  Receipt Date: 20120217
  Transmission Date: 20120608
  Serious: Yes (Other)
  Sender: FDA-Public Use
  Company Number: None

PATIENT
  Age: 36 Year
  Sex: Female
  Weight: 57.606 kg

DRUGS (1)
  1. ZYRTEC [Suspect]
     Indication: MULTIPLE ALLERGIES
     Dosage: 10MG
     Route: 048
     Dates: start: 20020301, end: 20120127

REACTIONS (5)
  - URTICARIA [None]
  - CONTUSION [None]
  - PRURITUS [None]
  - SKIN INJURY [None]
  - SCRATCH [None]
